FAERS Safety Report 8181303-4 (Version None)
Quarter: 2012Q1

REPORT INFORMATION
  Report Type: 
  Country: None (occurrence: None)
  Receive Date: 20120302
  Receipt Date: 20120227
  Transmission Date: 20120608
  Serious: Yes (Other)
  Sender: FDA-Public Use
  Company Number: US-BAYER-201013622NA

PATIENT
  Age: 47 Year
  Sex: Female
  Weight: 58.05 kg

DRUGS (96)
  1. MAGNEVIST [Suspect]
     Indication: NUCLEAR MAGNETIC RESONANCE IMAGING BRAIN
     Dosage: 14 ML, ONCE
     Route: 042
     Dates: start: 20010103, end: 20010103
  2. MAGNEVIST [Suspect]
     Dosage: 12 ML, ONCE
     Route: 042
     Dates: start: 20020326
  3. MAGNEVIST [Suspect]
     Dosage: 20 ML, ONCE
     Route: 042
     Dates: start: 20040102, end: 20040102
  4. GADOLINIUM IN UNSPECIFIED DRUG [Suspect]
  5. OMNISCAN [Suspect]
     Indication: NUCLEAR MAGNETIC RESONANCE IMAGING BRAIN
     Dosage: UNK
     Dates: start: 19970718, end: 19970718
  6. MULTIHANCE [Suspect]
     Indication: NUCLEAR MAGNETIC RESONANCE IMAGING BRAIN
     Dosage: 8 ML, ONCE
     Route: 042
     Dates: start: 20080103, end: 20080103
  7. PROCRIT [Concomitant]
     Dosage: 5000 U, UNK
     Dates: start: 19990101
  8. CALCITRIOL [Concomitant]
     Dosage: .25 ?G, QD
  9. DILANTIN [Concomitant]
     Dosage: 200 MG, QD
  10. EPOGEN [Concomitant]
  11. PROCRIT [Concomitant]
  12. GABAPENTIN [Concomitant]
  13. MAGNEVIST [Suspect]
     Dosage: 15 ML, ONCE
     Dates: start: 20030813, end: 20030813
  14. OMNISCAN [Suspect]
     Indication: NUCLEAR MAGNETIC RESONANCE IMAGING
     Dosage: 10 ML, ONCE
     Dates: start: 19980601, end: 19980601
  15. MULTIHANCE [Suspect]
     Dosage: DAILY DOSE 8 ML
     Dates: start: 20090103, end: 20090103
  16. WARFARIN SODIUM [Concomitant]
     Dosage: 5 MG TUES/THURS/SAT/SUN;7.5 MG MON/WED/FRI
     Route: 048
     Dates: start: 19990101
  17. OTHER IMMUNOSUPPRESSIVE AGENTS [Concomitant]
     Dosage: 10 MG, QD
  18. PREDNISONE TAB [Concomitant]
     Dosage: 10 MG, QD
  19. CHLORTHALIDONE [Concomitant]
  20. PAXIL [Concomitant]
     Dosage: 20 MG, QD
  21. LOPRESSOR [Concomitant]
  22. PRILOSEC [Concomitant]
  23. MYCELEX [Concomitant]
  24. AMPHOJEL [ALUMINIUM OXIDE] [Concomitant]
  25. MAGNEVIST [Suspect]
     Dosage: 20 ML, ONCE
     Dates: start: 20050629, end: 20050629
  26. GADOLINIUM IN UNSPECIFIED DRUG [Suspect]
     Indication: NUCLEAR MAGNETIC RESONANCE IMAGING BRAIN
     Dosage: UNK
     Dates: start: 19990615, end: 19990615
  27. GADOLINIUM IN UNSPECIFIED DRUG [Suspect]
     Indication: NUCLEAR MAGNETIC RESONANCE IMAGING
     Dosage: UNK
     Dates: start: 19990915, end: 19990915
  28. OMNISCAN [Suspect]
     Dosage: UNK
     Dates: start: 20011108, end: 20011108
  29. RANITIDINE [Concomitant]
     Dosage: 300 MG, BID
  30. ZOFRAN [Concomitant]
  31. OXYCONTIN [Concomitant]
     Dosage: 20 MG, BID
  32. FAMVIR [Concomitant]
  33. LASIX [Concomitant]
  34. PHOSLO [Concomitant]
  35. OXYCODONE HCL [Concomitant]
  36. OXYCODONE HCL AND ACETAMINOPHEN [Concomitant]
  37. MAGNEVIST [Suspect]
     Indication: NUCLEAR MAGNETIC RESONANCE IMAGING
     Dosage: 12 ML, ONCE
     Route: 042
     Dates: start: 20020318, end: 20020318
  38. MAGNEVIST [Suspect]
     Dosage: 20 ML, ONCE
     Route: 042
     Dates: start: 20021230, end: 20021230
  39. GADOLINIUM IN UNSPECIFIED DRUG [Suspect]
     Indication: HAEMORRHAGE INTRACRANIAL
     Dosage: DAILY DOSE 5 ML
  40. OMNISCAN [Suspect]
     Dosage: UNK
     Dates: start: 20010305, end: 20010305
  41. RENAGEL [Concomitant]
     Dosage: 403 UNK, UNK
     Dates: start: 19990101
  42. METOPROLOL SUCCINATE [Concomitant]
     Dosage: 50 MG, BID
     Dates: start: 20090101
  43. CLARITIN [Concomitant]
  44. THALOMID [Concomitant]
  45. IMITREX [Concomitant]
  46. ATENOLOL [Concomitant]
  47. THALIDOMIDE [Concomitant]
  48. RENAGEL [Concomitant]
  49. NEPHROCAPS [Concomitant]
  50. NEURONTIN [Concomitant]
  51. FOSAMAX [Concomitant]
  52. KLONOPIN [Concomitant]
  53. MAGNEVIST [Suspect]
     Dosage: 17 ML, ONCE
     Route: 042
     Dates: start: 20061211
  54. GADOLINIUM IN UNSPECIFIED DRUG [Suspect]
     Indication: ANGIOGRAM CEREBRAL
  55. OMNISCAN [Suspect]
     Dosage: UNK
     Dates: start: 20011030, end: 20011030
  56. OPTIMARK [Suspect]
     Indication: NUCLEAR MAGNETIC RESONANCE IMAGING
  57. NEURONTIN [Concomitant]
     Dosage: 300 MG, TID
  58. AMITRIPTYLINE HCL [Concomitant]
     Dosage: 50 MG, QD
  59. ACYCLOVIR [Concomitant]
  60. RANITIDINE [Concomitant]
  61. RENAPHRO [Concomitant]
  62. RENA-VITE [Concomitant]
  63. METOPROLOL SUCCINATE [Concomitant]
  64. MAGNEVIST [Suspect]
     Dosage: ^14 ML AND 16 ML^
     Route: 042
     Dates: start: 20051215, end: 20051215
  65. PROHANCE [Suspect]
     Indication: NUCLEAR MAGNETIC RESONANCE IMAGING
  66. ZETIA [Concomitant]
     Dosage: 10 MG, QD
  67. SYNTHROID [Concomitant]
     Dosage: 125 ?G, QD
  68. ZOLOFT [Concomitant]
  69. COUMADIN [Concomitant]
  70. SENOKOT [Concomitant]
  71. ROCALTROL [Concomitant]
  72. PREDNISONE TAB [Concomitant]
  73. NEPHROVITE [VIT C,VIT H,B5,B12,B9,B3,B6,B2,B1 HCL] [Concomitant]
  74. FUROSEMIDE [Concomitant]
  75. TIZANIDINE HCL [Concomitant]
  76. MAGNEVIST [Suspect]
     Dosage: 11 ML, ONCE
     Dates: start: 20020910, end: 20020910
  77. GADOLINIUM IN UNSPECIFIED DRUG [Suspect]
     Indication: NUCLEAR MAGNETIC RESONANCE IMAGING ABDOMINAL
     Dosage: UNK
     Dates: start: 20000323, end: 20000323
  78. OMNISCAN [Suspect]
     Dosage: UNK
     Dates: start: 20000323, end: 20000323
  79. MULTIHANCE [Suspect]
     Dosage: UNK
     Route: 042
     Dates: start: 20080331, end: 20080331
  80. LIPITOR [Concomitant]
     Dosage: 10 MG, QD
  81. SODIUM BICARBONATE [Concomitant]
  82. ACETAMINOPHEN AND OXYCODONE HCL [Concomitant]
  83. MYCOPHENOLATE MOFETIL (CELLCEPT) [Concomitant]
  84. IMMUNE GLOBULIN NOS [Concomitant]
  85. MAGNEVIST [Suspect]
     Dosage: 14 ML, ONCE
     Route: 042
     Dates: start: 20000830, end: 20000830
  86. MAGNEVIST [Suspect]
     Dosage: 14 ML, ONCE
     Route: 042
     Dates: start: 20001221, end: 20001221
  87. MAGNEVIST [Suspect]
     Dosage: 20 ML, ONCE
     Route: 042
     Dates: start: 20041203, end: 20041203
  88. GADOLINIUM IN UNSPECIFIED DRUG [Suspect]
     Dosage: UNK
     Dates: start: 20020423, end: 20020423
  89. MULTIHANCE [Suspect]
     Indication: NUCLEAR MAGNETIC RESONANCE IMAGING
     Dosage: 7 ML, UNK
     Route: 042
     Dates: start: 20080111, end: 20080111
  90. MULTIHANCE [Suspect]
     Dosage: DAILY DOSE 17 ML
     Route: 042
     Dates: start: 20080325, end: 20080325
  91. NEPHROCAPS [FOLIC ACID,VITAMINS NOS] [Concomitant]
     Dosage: 1 MG, UNK
     Route: 048
     Dates: start: 20090101
  92. LASIX [Concomitant]
  93. ATIVAN [Concomitant]
     Dosage: 1 MG AS NEEDED
  94. MARINOL [Concomitant]
  95. PROGRAF [Concomitant]
  96. LIPITOR [Concomitant]

REACTIONS (26)
  - PAIN [None]
  - SKIN DISORDER [None]
  - SKIN INDURATION [None]
  - SKIN HYPERTROPHY [None]
  - MUSCLE CONTRACTURE [None]
  - PAIN IN EXTREMITY [None]
  - HYPOAESTHESIA [None]
  - MUSCULOSKELETAL STIFFNESS [None]
  - NEPHROGENIC SYSTEMIC FIBROSIS [None]
  - SKIN FIBROSIS [None]
  - BURNING SENSATION [None]
  - JOINT STIFFNESS [None]
  - ERYTHEMA [None]
  - PRURITUS [None]
  - OEDEMA PERIPHERAL [None]
  - MUSCLE SPASMS [None]
  - SKIN TIGHTNESS [None]
  - PARAESTHESIA [None]
  - TRIGGER FINGER [None]
  - ACTIVITIES OF DAILY LIVING IMPAIRED [None]
  - GRIP STRENGTH DECREASED [None]
  - GAIT DISTURBANCE [None]
  - MOBILITY DECREASED [None]
  - SKIN DISCOLOURATION [None]
  - PEAU D'ORANGE [None]
  - JOINT RANGE OF MOTION DECREASED [None]
